FAERS Safety Report 25708746 (Version 1)
Quarter: 2025Q3

REPORT INFORMATION
  Report Type: Spontaneous
  Country: US (occurrence: US)
  Receive Date: 20250821
  Receipt Date: 20250821
  Transmission Date: 20251021
  Serious: No
  Sender: RANBAXY
  Company Number: US-MIMS-SUN-2025-USA-54984

PATIENT

DRUGS (1)
  1. TECHNETIUM TC-99M PYROPHOSPHATE [Suspect]
     Active Substance: TECHNETIUM TC-99M PYROPHOSPHATE
     Indication: Diagnostic procedure
     Route: 065

REACTIONS (1)
  - Product dose omission issue [Unknown]
